FAERS Safety Report 25355020 (Version 1)
Quarter: 2025Q2

REPORT INFORMATION
  Report Type: Spontaneous
  Country: US (occurrence: US)
  Receive Date: 20250524
  Receipt Date: 20250524
  Transmission Date: 20250717
  Serious: No
  Sender: ABBVIE
  Company Number: US-ABBVIE-6284015

PATIENT
  Age: 71 Year
  Sex: Female
  Weight: 88.904 kg

DRUGS (2)
  1. OXYTROL [Suspect]
     Active Substance: OXYBUTYNIN
     Indication: Urinary incontinence
     Route: 062
     Dates: start: 20250504
  2. OXYTROL [Suspect]
     Active Substance: OXYBUTYNIN
     Indication: Urinary incontinence

REACTIONS (3)
  - Erythema [Recovering/Resolving]
  - Drug ineffective [Not Recovered/Not Resolved]
  - Skin irritation [Recovering/Resolving]

NARRATIVE: CASE EVENT DATE: 20250501
